FAERS Safety Report 13167788 (Version 1)
Quarter: 2017Q1

REPORT INFORMATION
  Report Type: Spontaneous
  Country: NO (occurrence: NO)
  Receive Date: 20170131
  Receipt Date: 20170131
  Transmission Date: 20170428
  Serious: Yes (Hospitalization)
  Sender: FDA-Public Use
  Company Number: NO-ELI_LILLY_AND_COMPANY-NO201701008259

PATIENT
  Age: 4 Day

DRUGS (2)
  1. ZYPREXA [Suspect]
     Active Substance: OLANZAPINE
     Indication: INSOMNIA
     Dosage: UNK UNK, UNKNOWN
     Route: 064
  2. ZYPREXA [Suspect]
     Active Substance: OLANZAPINE
     Dosage: UNK UNK, UNKNOWN
     Route: 063

REACTIONS (7)
  - Pain [Unknown]
  - Blood bilirubin increased [Recovered/Resolved]
  - Crying [Recovered/Resolved with Sequelae]
  - Selective eating disorder [Not Recovered/Not Resolved]
  - Exposure during breast feeding [Unknown]
  - Posture abnormal [Unknown]
  - Irritability [Not Recovered/Not Resolved]

NARRATIVE: CASE EVENT DATE: 20160922
